FAERS Safety Report 6358479-4 (Version None)
Quarter: 2009Q3

REPORT INFORMATION
  Report Type: 
  Country: None (occurrence: None)
  Receive Date: 20090916
  Receipt Date: 20081121
  Transmission Date: 20100115
  Serious: No
  Sender: FDA-Public Use
  Company Number: US-AMGEN-KDL320250

PATIENT
  Sex: Male

DRUGS (18)
  1. NEUPOGEN [Suspect]
     Indication: CHEMOTHERAPY
     Dates: start: 20081120
  2. FLOMAX [Concomitant]
  3. FERROUS GLUCONATE [Concomitant]
     Route: 048
  4. IRON [Concomitant]
  5. LIPITOR [Concomitant]
  6. REGLAN [Concomitant]
  7. OMEPRAZOLE [Concomitant]
  8. CALCIUM [Concomitant]
  9. MICRO-K [Concomitant]
  10. ASPIRIN [Concomitant]
  11. COREG [Concomitant]
  12. LEUKINE [Concomitant]
     Dates: end: 20081117
  13. CYTOXAN [Concomitant]
  14. VINCRISTINE [Concomitant]
  15. RITUXAN [Concomitant]
  16. TOPROL-XL [Concomitant]
  17. LASIX [Concomitant]
  18. COUMADIN [Concomitant]

REACTIONS (2)
  - HYPOTENSION [None]
  - MALAISE [None]
